FAERS Safety Report 7060745-4 (Version None)
Quarter: 2010Q4

REPORT INFORMATION
  Report Type: 
  Country: None (occurrence: None)
  Receive Date: 20101025
  Receipt Date: 20100917
  Transmission Date: 20110411
  Serious: Yes (Other)
  Sender: FDA-Public Use
  Company Number: US-PURDUE-USA-2010-0049889

PATIENT
  Sex: Male

DRUGS (6)
  1. OXYCONTIN [Suspect]
     Indication: PAIN IN EXTREMITY
     Dosage: 60 MG, BID
  2. OXYCONTIN [Suspect]
     Indication: BACK PAIN
  3. OXYCONTIN [Suspect]
     Indication: NECK PAIN
  4. OXYCODONE HCL [Suspect]
     Indication: PAIN IN EXTREMITY
     Dosage: 15 MG, QID
  5. OXYCODONE HCL [Suspect]
     Indication: BACK PAIN
  6. OXYCODONE HCL [Suspect]
     Indication: NECK PAIN

REACTIONS (6)
  - DIARRHOEA [None]
  - DRUG WITHDRAWAL SYNDROME [None]
  - INSOMNIA [None]
  - PAIN [None]
  - SUICIDAL IDEATION [None]
  - VOMITING [None]
